FAERS Safety Report 12218276 (Version 1)
Quarter: 2016Q1

REPORT INFORMATION
  Report Type: Spontaneous
  Country: CA (occurrence: CA)
  Receive Date: 20160329
  Receipt Date: 20160329
  Transmission Date: 20160526
  Serious: Yes (Other)
  Sender: FDA-Public Use
  Company Number: CA-ALLERGAN-1652013US

PATIENT
  Age: 6 Decade
  Sex: Female

DRUGS (1)
  1. FIBRISTAL [Suspect]
     Active Substance: ULIPRISTAL
     Indication: UTERINE LEIOMYOMA
     Dosage: 5 MG, UNK
     Route: 048

REACTIONS (1)
  - Breast mass [Unknown]
